FAERS Safety Report 8125262-9 (Version None)
Quarter: 2012Q1

REPORT INFORMATION
  Report Type: 
  Country: None (occurrence: None)
  Receive Date: 20120209
  Receipt Date: 20120201
  Transmission Date: 20120608
  Serious: Yes (Hospitalization)
  Sender: FDA-Public Use
  Company Number: US-BAYER-2011-124538

PATIENT
  Sex: Female
  Weight: 136.5 kg

DRUGS (7)
  1. BISMUTH SUBSALICYLATE [Concomitant]
     Dosage: UNK
     Route: 048
     Dates: start: 20081113
  2. COZAAR [Concomitant]
     Dosage: 25 MG, QD
  3. HYDRODIURIL [Concomitant]
     Dosage: 25 MG, QD
     Route: 048
  4. LISINOPRIL [Concomitant]
     Dosage: 20 MG, UNK
     Dates: start: 20090105, end: 20090125
  5. PRILOSEC [Concomitant]
     Dosage: 20 MG, UNK
     Dates: start: 20090105, end: 20090125
  6. MOTRIN [Concomitant]
     Dosage: UNK
     Dates: start: 20010101
  7. YAZ [Suspect]
     Dosage: UNK
     Dates: start: 20081101, end: 20090101

REACTIONS (4)
  - DEEP VEIN THROMBOSIS [None]
  - SWELLING [None]
  - INJURY [None]
  - PAIN IN EXTREMITY [None]
